FAERS Safety Report 23276287 (Version 1)
Quarter: 2023Q4

REPORT INFORMATION
  Report Type: Spontaneous
  Country: US (occurrence: US)
  Receive Date: 20231208
  Receipt Date: 20231208
  Transmission Date: 20240110
  Serious: No
  Sender: FDA-Public Use
  Company Number: US-TAKEDA-2023TUS118030

PATIENT
  Age: 69 Year
  Sex: Female
  Weight: 53 kg

DRUGS (5)
  1. MOTEGRITY [Suspect]
     Active Substance: PRUCALOPRIDE SUCCINATE
     Indication: Constipation
     Dosage: 2 MILLIGRAM, QD
     Route: 065
     Dates: start: 20231205, end: 20231205
  2. SYNTHROID [Concomitant]
     Active Substance: LEVOTHYROXINE SODIUM
     Dosage: 75 MICROGRAM, Q6WEEKS
     Route: 065
  3. LEXAPRO [Concomitant]
     Active Substance: ESCITALOPRAM OXALATE
     Dosage: 5 MILLIGRAM, QD
     Route: 065
  4. PRALUENT [Concomitant]
     Active Substance: ALIROCUMAB
     Dosage: UNK, 2/MONTH
     Route: 065
  5. PRALUENT [Concomitant]
     Active Substance: ALIROCUMAB
     Dosage: UNK UNK, MONTHLY
     Route: 065

REACTIONS (11)
  - Musculoskeletal stiffness [Unknown]
  - Paraesthesia [Unknown]
  - Feeling abnormal [Unknown]
  - Illness [Unknown]
  - Urinary incontinence [Unknown]
  - Abdominal distension [Unknown]
  - Tremor [Unknown]
  - Nausea [Unknown]
  - Headache [Unknown]
  - Flatulence [Unknown]
  - Diarrhoea [Unknown]
